FAERS Safety Report 9719002 (Version 2)
Quarter: 2013Q4

REPORT INFORMATION
  Report Type: Spontaneous
  Country: FR (occurrence: FR)
  Receive Date: 20131127
  Receipt Date: 20131205
  Transmission Date: 20140711
  Serious: Yes (Hospitalization)
  Sender: FDA-Public Use
  Company Number: FR-009507513-1311FRA009640

PATIENT
  Age: 5 Year
  Sex: Female
  Weight: 36 kg

DRUGS (4)
  1. STROMECTOL [Suspect]
     Indication: SCAB
     Dosage: 3 MG, ONCE
     Route: 048
     Dates: start: 20131005, end: 20131005
  2. SPREGAL [Suspect]
     Indication: SCAB
     Dosage: 1 DF, ONCE
     Route: 003
     Dates: start: 20131005
  3. AMOXICILLIN [Suspect]
     Indication: SCAB
     Dosage: UNK
     Dates: start: 20131005, end: 20131011
  4. NUROFEN [Suspect]
     Indication: SCAB
     Dosage: UNK, ONCE
     Route: 048
     Dates: start: 20131005

REACTIONS (3)
  - Condition aggravated [Recovered/Resolved]
  - Pruritus [Recovered/Resolved]
  - Rash [Recovered/Resolved]
